FAERS Safety Report 14285159 (Version 1)
Quarter: 2017Q4

REPORT INFORMATION
  Report Type: Spontaneous
  Country: US (occurrence: US)
  Receive Date: 20171214
  Receipt Date: 20171214
  Transmission Date: 20180321
  Serious: Yes (Other)
  Sender: FDA-Public Use
  Company Number: US-CIPLA LTD.-2017US22576

PATIENT

DRUGS (11)
  1. VITAMIN B12 [Concomitant]
     Active Substance: CYANOCOBALAMIN
     Dosage: UNK, QD
     Route: 065
  2. ATRIPLA [Concomitant]
     Active Substance: EFAVIRENZ\EMTRICITABINE\TENOFOVIR DISOPROXIL FUMARATE
     Indication: HIV INFECTION
     Dosage: UNK, QD
     Route: 065
  3. TERBINAFINE. [Suspect]
     Active Substance: TERBINAFINE
     Indication: ONYCHOMYCOSIS
     Dosage: UNK, QD
     Route: 048
     Dates: start: 20171021
  4. CRESTOR [Concomitant]
     Active Substance: ROSUVASTATIN CALCIUM
     Dosage: 10 MG, QD
     Route: 065
  5. CITALOPRAM [Concomitant]
     Active Substance: CITALOPRAM HYDROBROMIDE
     Dosage: 20 MG, QD
     Route: 065
  6. TESTOSTERONE CYP [Concomitant]
     Active Substance: TESTOSTERONE CYPIONATE
     Dosage: 20 MG 0.75 ML ONCE A WEEK
     Route: 065
  7. CENTRUM MULTIVITAMIN [Concomitant]
     Dosage: UNK, QD
     Route: 065
  8. LORATADINE. [Concomitant]
     Active Substance: LORATADINE
     Indication: HYPERSENSITIVITY
     Dosage: 10 MG, QD
     Route: 065
  9. VITAMIN D [Concomitant]
     Active Substance: CHOLECALCIFEROL
     Dosage: UNK, QD (2000 UNITS)
  10. OXANDROLONE. [Concomitant]
     Active Substance: OXANDROLONE
     Dosage: 10 MG, BID
     Route: 065
  11. NIACIN. [Concomitant]
     Active Substance: NIACIN
     Dosage: 2000 MG, QD
     Route: 065

REACTIONS (2)
  - Musculoskeletal discomfort [Unknown]
  - Chronic inflammatory demyelinating polyradiculoneuropathy [Not Recovered/Not Resolved]

NARRATIVE: CASE EVENT DATE: 20171107
